FAERS Safety Report 9315369 (Version 2)
Quarter: 2013Q2

REPORT INFORMATION
  Report Type: Spontaneous
  Country: EC (occurrence: EC)
  Receive Date: 20130529
  Receipt Date: 20130612
  Transmission Date: 20140414
  Serious: Yes (Other)
  Sender: FDA-Public Use
  Company Number: EC-PFIZER INC-2013163059

PATIENT
  Age: 15 Year
  Sex: Female

DRUGS (1)
  1. GENOTROPIN [Suspect]
     Dosage: UNK
     Route: 058
     Dates: start: 2008, end: 2010

REACTIONS (1)
  - Turner^s syndrome [Recovered/Resolved]
